FAERS Safety Report 8160204-1 (Version None)
Quarter: 2012Q1

REPORT INFORMATION
  Report Type: 
  Country: None (occurrence: None)
  Receive Date: 20120223
  Receipt Date: 20120213
  Transmission Date: 20120608
  Serious: Yes (Hospitalization, Other)
  Sender: FDA-Public Use
  Company Number: JP-TEVA-2011005650

PATIENT
  Sex: Male
  Weight: 70 kg

DRUGS (10)
  1. PROPIVERINE [Concomitant]
     Dosage: 20 MILLIGRAM;
  2. GRANISETRON HYDROCHLORIDE [Concomitant]
     Indication: PROPHYLAXIS
     Dates: start: 20110117, end: 20110308
  3. DEXAMETHASONE SODIUM PHOSPHATE [Concomitant]
     Indication: PROPHYLAXIS
     Dates: start: 20110117, end: 20110308
  4. BACTRIM [Concomitant]
     Indication: PROPHYLAXIS
     Route: 049
  5. MAGNESIUM OXIDE [Concomitant]
     Indication: PROPHYLAXIS
     Dosage: 1.5 GRAM;
  6. SENNOSIDE A+B CALCIUM [Concomitant]
     Indication: PROPHYLAXIS
     Route: 048
     Dates: start: 20110310
  7. UREA [Concomitant]
     Indication: PROPHYLAXIS
  8. TREANDA [Suspect]
     Indication: MANTLE CELL LYMPHOMA
     Route: 042
     Dates: start: 20110117
  9. ACYCLOVIR [Concomitant]
     Indication: PROPHYLAXIS
     Route: 048
     Dates: start: 20110117, end: 20110121
  10. ZOPICLONE [Concomitant]
     Indication: INSOMNIA
     Dosage: 7.5 MILLIGRAM;

REACTIONS (13)
  - WHITE BLOOD CELL COUNT DECREASED [None]
  - ANGIOPATHY [None]
  - NAUSEA [None]
  - FEBRILE NEUTROPENIA [None]
  - DECREASED APPETITE [None]
  - LYMPHOCYTE COUNT DECREASED [None]
  - RASH [None]
  - HERPES ZOSTER [None]
  - NEUTROPHIL COUNT DECREASED [None]
  - MALAISE [None]
  - ANAEMIA [None]
  - PNEUMONIA CYTOMEGALOVIRAL [None]
  - HYPOCALCAEMIA [None]
